FAERS Safety Report 18088220 (Version 2)
Quarter: 2020Q4

REPORT INFORMATION
  Report Type: Report from Study
  Country: BR (occurrence: BR)
  Receive Date: 20200729
  Receipt Date: 20201006
  Transmission Date: 20210113
  Serious: Yes (Hospitalization)
  Sender: FDA-Public Use
  Company Number: BR-JNJFOC-20200730441

PATIENT
  Age: 19 Year
  Sex: Male
  Weight: 40 kg

DRUGS (1)
  1. INFLIXIMAB, RECOMBINANT [Suspect]
     Active Substance: INFLIXIMAB
     Indication: CROHN^S DISEASE
     Route: 042
     Dates: start: 20180613, end: 20200415

REACTIONS (1)
  - Tuberculosis liver [Unknown]

NARRATIVE: CASE EVENT DATE: 20200515
